FAERS Safety Report 20203481 (Version 2)
Quarter: 2022Q1

REPORT INFORMATION
  Report Type: Spontaneous
  Country: JP (occurrence: JP)
  Receive Date: 20211219
  Receipt Date: 20220205
  Transmission Date: 20220424
  Serious: Yes (Hospitalization)
  Sender: FDA-Public Use
  Company Number: JP-JNJFOC-20211230863

PATIENT
  Age: 20 Year
  Sex: Female
  Weight: 55.8 kg

DRUGS (1)
  1. TRACLEER [Suspect]
     Active Substance: BOSENTAN
     Indication: Pulmonary hypertension
     Dosage: BOSENTAN HYDRATE:62.5MG
     Route: 048

REACTIONS (1)
  - Splenic artery aneurysm [Recovered/Resolved]
